FAERS Safety Report 25467235 (Version 1)
Quarter: 2025Q2

REPORT INFORMATION
  Report Type: Spontaneous
  Country: DE (occurrence: DE)
  Receive Date: 20250623
  Receipt Date: 20250623
  Transmission Date: 20250717
  Serious: Yes (Other)
  Sender: AUROBINDO
  Company Number: DE-CADRBFARM-2025336647

PATIENT
  Age: 24 Year
  Sex: Female
  Weight: 63 kg

DRUGS (3)
  1. GABAPENTIN [Interacting]
     Active Substance: GABAPENTIN
     Indication: Endometriosis
     Dosage: 200 MILLIGRAM, ONCE A DAY (IN THE EVENING)
     Route: 048
     Dates: start: 20250201
  2. GABAPENTIN [Interacting]
     Active Substance: GABAPENTIN
     Indication: Pain
  3. ESTRADIOL\NORETHINDRONE ACETATE\RELUGOLIX [Interacting]
     Active Substance: ESTRADIOL\NORETHINDRONE ACETATE\RELUGOLIX
     Indication: Endometriosis
     Route: 048
     Dates: start: 20241122

REACTIONS (2)
  - Haematochezia [Recovering/Resolving]
  - Drug intolerance [Unknown]

NARRATIVE: CASE EVENT DATE: 20250201
